FAERS Safety Report 25475396 (Version 2)
Quarter: 2025Q3

REPORT INFORMATION
  Report Type: Spontaneous
  Country: US (occurrence: US)
  Receive Date: 20250624
  Receipt Date: 20250722
  Transmission Date: 20251020
  Serious: No
  Sender: GLAUKOS
  Company Number: US-GLK-000655

PATIENT
  Age: 27 Year

DRUGS (6)
  1. PHOTREXA VISCOUS [Suspect]
     Active Substance: RIBOFLAVIN 5^-PHOSPHATE SODIUM
     Indication: Corneal cross linking
     Route: 047
     Dates: start: 20250610, end: 20250610
  2. PHOTREXA [Suspect]
     Active Substance: RIBOFLAVIN 5^-PHOSPHATE SODIUM
     Indication: Corneal cross linking
     Route: 047
     Dates: start: 20250610, end: 20250610
  3. ACUVAIL [Concomitant]
     Active Substance: KETOROLAC TROMETHAMINE
  4. Prednisolone moxifloxacin [Concomitant]
  5. MOXIFLOXACIN [Concomitant]
     Active Substance: MOXIFLOXACIN
  6. PREDNISOLONE [Concomitant]
     Active Substance: PREDNISOLONE

REACTIONS (1)
  - Therapeutic response decreased [Recovered/Resolved]

NARRATIVE: CASE EVENT DATE: 20250610
